FAERS Safety Report 4714128-X (Version None)
Quarter: 2005Q2

REPORT INFORMATION
  Report Type: 
  Country: None (occurrence: None)
  Receive Date: 20050630
  Receipt Date: 20041007
  Transmission Date: 20051028
  Serious: Yes (Hospitalization)
  Sender: FDA-Public Use
  Company Number: 2004-10-0647

PATIENT
  Age: 52 Year
  Sex: Female

DRUGS (5)
  1. ALBUTEROL [Suspect]
     Dosage: ORAL AER INH
     Route: 055
  2. AZITHROMYCIN [Concomitant]
  3. NEXIUM [Concomitant]
  4. PREDNISONE [Concomitant]
  5. NORVASC [Concomitant]

REACTIONS (1)
  - ASTHMA [None]
